FAERS Safety Report 21712637 (Version 1)
Quarter: 2022Q4

REPORT INFORMATION
  Report Type: Report from Study
  Country: FR (occurrence: FR)
  Receive Date: 20221212
  Receipt Date: 20221212
  Transmission Date: 20230113
  Serious: Yes (Disabling, Other)
  Sender: FDA-Public Use
  Company Number: FR-GLAXOSMITHKLINE-FR2022EME138452

PATIENT
  Sex: Male

DRUGS (3)
  1. ALBUTEROL [Suspect]
     Active Substance: ALBUTEROL
     Indication: Congenital myasthenic syndrome
     Dosage: 3 MILLIGRAM, QD, 1 MG, TID
     Route: 048
  2. ALBUTEROL [Suspect]
     Active Substance: ALBUTEROL
     Dosage: 6 MILLIGRAM, QD, 2 MG, TID
     Route: 048
     Dates: start: 2020
  3. VENTOLIN [Suspect]
     Active Substance: ALBUTEROL SULFATE
     Indication: Congenital myasthenic syndrome
     Dosage: 2 MG/5 ML
     Route: 065

REACTIONS (1)
  - Condition aggravated [Not Recovered/Not Resolved]

NARRATIVE: CASE EVENT DATE: 20220101
